FAERS Safety Report 21064424 (Version 1)
Quarter: 2022Q3

REPORT INFORMATION
  Report Type: Spontaneous
  Country: FR (occurrence: FR)
  Receive Date: 20220711
  Receipt Date: 20220711
  Transmission Date: 20221027
  Serious: Yes (Hospitalization, Other)
  Sender: FDA-Public Use
  Company Number: FR-TRIS PHARMA, INC.-22FR010321

PATIENT

DRUGS (5)
  1. RISPERIDONE [Suspect]
     Active Substance: RISPERIDONE
     Indication: Schizophrenia
     Dosage: 4 MILLIGRAM, QD
  2. PALIPERIDONE [Suspect]
     Active Substance: PALIPERIDONE
     Indication: Schizophrenia
     Dosage: 150 MILLIGRAM, MONTHLY
     Route: 030
  3. PALIPERIDONE [Suspect]
     Active Substance: PALIPERIDONE
     Dosage: 75 MILLIGRAM, INJECTION
  4. ARIPIPRAZOLE [Suspect]
     Active Substance: ARIPIPRAZOLE
     Indication: Schizophrenia
     Dosage: 30 MILLIGRAM, QD
  5. ARIPIPRAZOLE [Suspect]
     Active Substance: ARIPIPRAZOLE
     Dosage: 15 MILLIGRAM, QD

REACTIONS (2)
  - Persecutory delusion [Recovering/Resolving]
  - Anxiety [Recovering/Resolving]
